FAERS Safety Report 20435626 (Version 3)
Quarter: 2022Q1

REPORT INFORMATION
  Report Type: Spontaneous
  Country: US (occurrence: US)
  Receive Date: 20220207
  Receipt Date: 20220311
  Transmission Date: 20220423
  Serious: Yes (Other)
  Sender: FDA-Public Use
  Company Number: US-GLENMARK PHARMACEUTICALS-2022GMK069977

PATIENT

DRUGS (2)
  1. ACYCLOVIR [Suspect]
     Active Substance: ACYCLOVIR
     Indication: Genital herpes
     Dosage: UNK (SHE WOULD USE IT ?SPORADICALLY? EVERY FEW MONTHS WHEN SHE ?MIGHT HAVE FELT SOMETHING)
     Route: 061
     Dates: start: 2020
  2. ACYCLOVIR [Suspect]
     Active Substance: ACYCLOVIR
     Dosage: 1 DOSAGE FORM, BID (SPARINGLY ONCE IN THE MORNING AND ONCE IN THE EVENING)
     Route: 061
     Dates: start: 2020

REACTIONS (6)
  - Atrial fibrillation [Not Recovered/Not Resolved]
  - Hiatus hernia [Not Recovered/Not Resolved]
  - Expired product administered [Unknown]
  - Inappropriate schedule of product administration [Unknown]
  - Drug ineffective [Unknown]
  - Herpes simplex [Unknown]
